FAERS Safety Report 9311269 (Version 1)
Quarter: 2013Q2

REPORT INFORMATION
  Report Type: Spontaneous
  Country: GB (occurrence: GB)
  Receive Date: 20130528
  Receipt Date: 20130528
  Transmission Date: 20140414
  Serious: Yes (Death, Other)
  Sender: FDA-Public Use
  Company Number: GB-PFIZER INC-2013160351

PATIENT
  Sex: 0

DRUGS (2)
  1. PREGABALIN [Suspect]
     Dosage: UNK
  2. PREGABALIN [Suspect]
     Dosage: UNK 2X/DAY

REACTIONS (4)
  - Completed suicide [Fatal]
  - Suicidal ideation [Unknown]
  - Depressed mood [Unknown]
  - Anxiety [Unknown]
